FAERS Safety Report 16241966 (Version 1)
Quarter: 2019Q2

REPORT INFORMATION
  Report Type: Spontaneous
  Country: US (occurrence: US)
  Receive Date: 20190426
  Receipt Date: 20190426
  Transmission Date: 20190711
  Serious: No
  Sender: FDA-Public Use
  Company Number: US-AMGEN-USASP2019065457

PATIENT
  Age: 37 Year
  Sex: Female

DRUGS (1)
  1. AIMOVIG [Suspect]
     Active Substance: ERENUMAB-AOOE
     Indication: MIGRAINE
     Dosage: 140 MILLIGRAM, EVERY 28 DAYS
     Route: 065
     Dates: start: 201901

REACTIONS (2)
  - Therapeutic product effect incomplete [Unknown]
  - Migraine [Unknown]

NARRATIVE: CASE EVENT DATE: 2019
